FAERS Safety Report 24715697 (Version 1)
Quarter: 2024Q4

REPORT INFORMATION
  Report Type: Spontaneous
  Country: US (occurrence: US)
  Receive Date: 20241210
  Receipt Date: 20241210
  Transmission Date: 20250115
  Serious: No
  Sender: BAUSCH AND LOMB
  Company Number: US-BAUSCH-BL-2024-017660

PATIENT
  Age: 71 Year
  Sex: Female

DRUGS (1)
  1. DILTIAZEM HYDROCHLORIDE [Suspect]
     Active Substance: DILTIAZEM HYDROCHLORIDE
     Indication: Product used for unknown indication
     Route: 048
     Dates: start: 202411

REACTIONS (4)
  - Swollen tongue [Not Recovered/Not Resolved]
  - Glossodynia [Recovering/Resolving]
  - Lip swelling [Not Recovered/Not Resolved]
  - Lip pruritus [Recovering/Resolving]

NARRATIVE: CASE EVENT DATE: 20241101
